FAERS Safety Report 23116075 (Version 1)
Quarter: 2023Q4

REPORT INFORMATION
  Report Type: Spontaneous
  Country: US (occurrence: None)
  Receive Date: 20231026
  Receipt Date: 20231026
  Transmission Date: 20240110
  Serious: Yes (Hospitalization)
  Sender: FDA-Public Use
  Company Number: None

PATIENT
  Sex: Female

DRUGS (6)
  1. ALECENSA [Suspect]
     Active Substance: ALECTINIB HYDROCHLORIDE
     Indication: Lung carcinoma cell type unspecified stage 0
     Dosage: AT BEDTIME
     Route: 048
     Dates: start: 20170908
  2. LETROZOLE [Concomitant]
     Active Substance: LETROZOLE
  3. QVAR [Concomitant]
     Active Substance: BECLOMETHASONE DIPROPIONATE
  4. THEOPHYLLINE [Concomitant]
     Active Substance: THEOPHYLLINE
  5. VERZENIO [Concomitant]
     Active Substance: ABEMACICLIB
  6. VITAMIN D [Concomitant]
     Active Substance: VITAMIN D NOS

REACTIONS (1)
  - Therapy interrupted [None]
